FAERS Safety Report 25062959 (Version 1)
Quarter: 2025Q1

REPORT INFORMATION
  Report Type: Spontaneous
  Country: FR (occurrence: FR)
  Receive Date: 20250311
  Receipt Date: 20250311
  Transmission Date: 20250409
  Serious: Yes (Hospitalization)
  Sender: RANBAXY
  Company Number: FR-AFSSAPS-NY2025000059

PATIENT
  Age: 61 Year
  Sex: Male
  Weight: 94 kg

DRUGS (13)
  1. CLOPIDOGREL [Interacting]
     Active Substance: CLOPIDOGREL BISULFATE
     Indication: Thrombosis prophylaxis
     Dosage: 75 MILLIGRAM, DAILY
     Route: 048
     Dates: start: 2024, end: 20241127
  2. FLUINDIONE [Interacting]
     Active Substance: FLUINDIONE
     Indication: Thrombosis prophylaxis
     Dosage: 10 MILLIGRAM, DAILY
     Route: 048
     Dates: start: 2024, end: 20241127
  3. FLUINDIONE [Interacting]
     Active Substance: FLUINDIONE
     Dosage: 10 MILLIGRAM, DAILY
     Route: 048
     Dates: start: 20241225
  4. KARDEGIC [Interacting]
     Active Substance: ASPIRIN DL-LYSINE
     Indication: Thrombosis prophylaxis
     Dosage: 75 MILLIGRAM, DAILY
     Route: 048
     Dates: start: 2024, end: 20241127
  5. KARDEGIC [Interacting]
     Active Substance: ASPIRIN DL-LYSINE
     Dosage: 75 MILLIGRAM, DAILY
     Route: 048
     Dates: start: 20241207
  6. ATENOLOL [Concomitant]
     Active Substance: ATENOLOL
     Indication: Hypertension
     Dosage: 50 MILLIGRAM, BID
     Route: 048
     Dates: start: 2024, end: 20241203
  7. ATENOLOL [Concomitant]
     Active Substance: ATENOLOL
     Dosage: 50 MILLIGRAM, BID
     Route: 048
     Dates: start: 20241206, end: 20241208
  8. PERINDOPRIL [Concomitant]
     Active Substance: PERINDOPRIL
     Indication: Hypertension
     Dosage: 10 MILLIGRAM, DAILY
     Route: 048
     Dates: start: 2024, end: 20241203
  9. PERINDOPRIL [Concomitant]
     Active Substance: PERINDOPRIL
     Dosage: 10 MILLIGRAM, DAILY
     Route: 048
     Dates: start: 20241207, end: 20241210
  10. AMLODIPINE [Concomitant]
     Active Substance: AMLODIPINE BESYLATE
     Indication: Hypertension
     Dosage: 10 MILLIGRAM, DAILY
     Route: 048
     Dates: start: 2024, end: 20241129
  11. METFORMIN [Concomitant]
     Active Substance: METFORMIN HYDROCHLORIDE
     Indication: Type 2 diabetes mellitus
     Dosage: 1000 MILLIGRAM, TID
     Route: 048
     Dates: start: 2024, end: 20241129
  12. ATORVASTATIN [Concomitant]
     Active Substance: ATORVASTATIN
     Indication: Dyslipidaemia
     Dosage: 40 MILLIGRAM, DAILY
     Route: 048
     Dates: start: 2024, end: 20241203
  13. LEVOTHYROXINE [Concomitant]
     Active Substance: LEVOTHYROXINE
     Indication: Dyslipidaemia
     Dosage: 88 MCG, DAILY
     Route: 048
     Dates: start: 2024

REACTIONS (2)
  - Haemorrhagic stroke [Recovering/Resolving]
  - Drug interaction [Recovered/Resolved]

NARRATIVE: CASE EVENT DATE: 20241227
